FAERS Safety Report 5898009-4 (Version None)
Quarter: 2008Q3

REPORT INFORMATION
  Report Type: 
  Country: None (occurrence: None)
  Receive Date: 20080917
  Receipt Date: 20080220
  Transmission Date: 20090109
  Serious: Yes (Other)
  Sender: FDA-Public Use
  Company Number: PHEH2008US02121

PATIENT
  Sex: Female

DRUGS (1)
  1. FEMARA [Suspect]

REACTIONS (5)
  - BLOOD CHOLESTEROL INCREASED [None]
  - BONE PAIN [None]
  - HYPERTENSION [None]
  - JOINT SWELLING [None]
  - MYALGIA [None]
